FAERS Safety Report 11830177 (Version 1)
Quarter: 2015Q4

REPORT INFORMATION
  Report Type: Spontaneous
  Country: TR (occurrence: TR)
  Receive Date: 20151214
  Receipt Date: 20151214
  Transmission Date: 20160305
  Serious: Yes (Hospitalization, Other)
  Sender: FDA-Public Use
  Company Number: TR-ALEMBIC PHARMACUETICALS LIMITED-2015SCAL000859

PATIENT
  Age: 82 Year
  Sex: Female

DRUGS (6)
  1. QUETIAPINE FUMARATE. [Concomitant]
     Active Substance: QUETIAPINE FUMARATE
     Indication: BIPOLAR DISORDER
     Dosage: 25 MG, QD
  2. LITHIUM CARBONATE. [Suspect]
     Active Substance: LITHIUM CARBONATE
     Indication: BIPOLAR DISORDER
     Dosage: 300 MG, BID
  3. IBANDRONIC ACID [Concomitant]
     Active Substance: IBANDRONIC ACID
     Indication: OSTEOPOROSIS
     Dosage: 150 MG, MONTHLY
  4. CALCIUM/CHOLECALCEFEROL [Concomitant]
     Indication: OSTEOPOROSIS
     Dosage: 1000/880 MG DAILY (FOR 1 YEAR)
  5. LEVODOPA/BENSERAZIDE [Concomitant]
     Active Substance: BENSERAZIDE\LEVODOPA
     Indication: PARKINSON^S DISEASE
     Dosage: 100/25 MG THREE TIMES DAILY (FOR 2 YEARS)
  6. RAMIPRIL. [Concomitant]
     Active Substance: RAMIPRIL
     Indication: HYPERTENSION
     Dosage: 2.5 MG, QD (FOR 10 YEARS)

REACTIONS (6)
  - Hypercalcaemia [Recovered/Resolved]
  - Toxicity to various agents [Unknown]
  - Sinus bradycardia [Recovering/Resolving]
  - Nephrogenic diabetes insipidus [Recovering/Resolving]
  - Hyperparathyroidism [Unknown]
  - Thyroid disorder [Recovered/Resolved]
